FAERS Safety Report 15747762 (Version 1)
Quarter: 2018Q4

REPORT INFORMATION
  Report Type: Spontaneous
  Country: US (occurrence: US)
  Receive Date: 20181221
  Receipt Date: 20181221
  Transmission Date: 20190205
  Serious: Yes (Other)
  Sender: FDA-Public Use
  Company Number: US-JNJFOC-20181140535

PATIENT
  Sex: Female

DRUGS (18)
  1. MELATONIN [Concomitant]
     Active Substance: MELATONIN
     Dosage: 3 MG, UNK
  2. METHYLPREDNISOLONE. [Concomitant]
     Active Substance: METHYLPREDNISOLONE
     Dosage: 4 MG, UNK
  3. OMEPRAZOLE. [Concomitant]
     Active Substance: OMEPRAZOLE
     Dosage: 20 MG, DELAYED RELEASE
  4. ROPINIROLE. [Concomitant]
     Active Substance: ROPINIROLE
     Dosage: 1 MG, UNK
  5. TRAMADOL. [Concomitant]
     Active Substance: TRAMADOL
     Dosage: 50 MG, UNK
  6. MAGNESIUM [Concomitant]
     Active Substance: MAGNESIUM
     Dosage: 600 MG, UNK
  7. CYCLOBENZAPRINE. [Concomitant]
     Active Substance: CYCLOBENZAPRINE
     Dosage: 10 MG, UNK
  8. CHOLECALCIFEROL [Concomitant]
     Active Substance: CHOLECALCIFEROL
     Dosage: 1000 UNIT, UNK
  9. ACETAMINOPHEN. [Concomitant]
     Active Substance: ACETAMINOPHEN
     Dosage: 325 MG, UNK
  10. COLLAGEN [Concomitant]
     Active Substance: COLLAGEN
     Dosage: 600 MG, UNK
  11. GLUCOSAMINE CHONDROITIN COMPLEX    /08170101/ [Concomitant]
     Route: 048
  12. CALCIUM [Concomitant]
     Active Substance: CALCIUM
     Dosage: 500 MG, UNK
  13. SERTRALINE [Concomitant]
     Active Substance: SERTRALINE HYDROCHLORIDE
     Dosage: 100 MG, UNK
  14. IMBRUVICA [Suspect]
     Active Substance: IBRUTINIB
     Indication: CHRONIC LYMPHOCYTIC LEUKAEMIA
     Dosage: 140 MG, UNK
     Route: 065
  15. FLUTICASONE. [Concomitant]
     Active Substance: FLUTICASONE
     Dosage: 50 MCG, ACT SUSP
  16. MARIJUANA [Concomitant]
     Active Substance: CANNABIS SATIVA SUBSP. INDICA TOP
     Dosage: MARIJUANA THERAPEUTLC
  17. NAPROXEN SODIUM. [Concomitant]
     Active Substance: NAPROXEN SODIUM
     Dosage: 220 MG, UNK
  18. FISH OIL W/OMEGA-3 FATTY ACIDS [Concomitant]
     Active Substance: FISH OIL\OMEGA-3 FATTY ACIDS
     Dosage: 1200 MG, UNK

REACTIONS (13)
  - Sternal fracture [Unknown]
  - Rib fracture [Unknown]
  - Viral upper respiratory tract infection [Unknown]
  - Sleep apnoea syndrome [Unknown]
  - Ear pain [Unknown]
  - Arthralgia [Unknown]
  - Thoracic vertebral fracture [Unknown]
  - Restless legs syndrome [Unknown]
  - Skin lesion [Unknown]
  - Osteopenia [Unknown]
  - Insomnia [Unknown]
  - Gastrooesophageal reflux disease [Unknown]
  - Spinal compression fracture [Unknown]
